FAERS Safety Report 4269733-4 (Version None)
Quarter: 2004Q1

REPORT INFORMATION
  Report Type: 
  Country: None (occurrence: None)
  Receive Date: 20040107
  Receipt Date: 20031224
  Transmission Date: 20041129
  Serious: No
  Sender: FDA-Public Use
  Company Number: CART-10286

PATIENT
  Age: 28 Year
  Sex: Female

DRUGS (1)
  1. CARTICEL [Suspect]
     Indication: ARTHROPATHY
     Dosage: 1 NA ONCE IS
     Dates: start: 20030729, end: 20030729

REACTIONS (4)
  - ARTHRITIS INFECTIVE [None]
  - DISEASE RECURRENCE [None]
  - HAEMOPHILUS INFECTION [None]
  - JOINT EFFUSION [None]
